FAERS Safety Report 5009678-5 (Version None)
Quarter: 2006Q2

REPORT INFORMATION
  Report Type: 
  Country: None (occurrence: None)
  Receive Date: 20060522
  Receipt Date: 20060512
  Transmission Date: 20061013
  Serious: Yes (Life-Threatening, Hospitalization)
  Sender: FDA-Public Use
  Company Number: 2006-05-1127

PATIENT
  Age: 65 Year
  Sex: Female

DRUGS (5)
  1. PEG-INTRON [Suspect]
     Indication: HEPATITIS C
     Dosage: 30 MCG QW SUBCUTANEOUS
     Route: 058
     Dates: start: 20060424, end: 20060424
  2. REBETOL [Suspect]
     Indication: HEPATITIS C
     Dosage: 200 MG ORAL
     Route: 048
     Dates: start: 20060424, end: 20060430
  3. LOXONIN [Concomitant]
  4. RECTAL [Concomitant]
  5. VOLTAREN [Concomitant]

REACTIONS (4)
  - HAEMODIALYSIS [None]
  - HEPATIC FAILURE [None]
  - NECK INJURY [None]
  - RENAL FAILURE ACUTE [None]
